FAERS Safety Report 5758173-4 (Version None)
Quarter: 2008Q2

REPORT INFORMATION
  Report Type: 
  Country: None (occurrence: None)
  Receive Date: 20080530
  Receipt Date: 20080514
  Transmission Date: 20081010
  Serious: Yes (Other)
  Sender: FDA-Public Use
  Company Number: S08-ESP-01910-01

PATIENT
  Age: 74 Year
  Sex: Male

DRUGS (8)
  1. MEMANTINE HCL [Suspect]
     Dosage: 10 MG QD PO
     Route: 048
     Dates: start: 20071201, end: 20080219
  2. DIANBEN (METFORMIN HYDROCHLORIDE) [Concomitant]
  3. HUMULINE NPH (INSULIN HUMAN INJECTION, ISOPHANE) [Concomitant]
  4. ACETYLSALICYLIC ACID SRT [Concomitant]
  5. ANAGASTRA (PANTOPRAZOLE SODIUM) [Concomitant]
  6. NEURONTIN [Concomitant]
  7. ATORVASTATIN CALCIUM [Concomitant]
  8. EXELON [Concomitant]

REACTIONS (6)
  - AMNESIA [None]
  - COORDINATION ABNORMAL [None]
  - DISORIENTATION [None]
  - DIZZINESS [None]
  - INSOMNIA [None]
  - SYNCOPE [None]
